FAERS Safety Report 22007959 (Version 2)
Quarter: 2023Q2

REPORT INFORMATION
  Report Type: Report from Study
  Country: FR (occurrence: FR)
  Receive Date: 20230218
  Receipt Date: 20230516
  Transmission Date: 20230721
  Serious: Yes (Other)
  Sender: FDA-Public Use
  Company Number: FR-BAYER-2022P011293

PATIENT
  Age: 83 Year
  Sex: Female

DRUGS (18)
  1. EYLEA [Suspect]
     Active Substance: AFLIBERCEPT
     Indication: Neovascular age-related macular degeneration
     Dosage: LEFT EYE (OS), SOLUTION FOR INJECTION 40 MG/ML
     Route: 031
     Dates: start: 20200225, end: 20200225
  2. EYLEA [Suspect]
     Active Substance: AFLIBERCEPT
     Dosage: LEFT EYE (OS), SOLUTION FOR INJECTION 40 MG/ML
     Route: 031
     Dates: start: 20200324, end: 20200324
  3. EYLEA [Suspect]
     Active Substance: AFLIBERCEPT
     Dosage: LEFT EYE (OS), SOLUTION FOR INJECTION 40 MG/ML
     Route: 031
     Dates: start: 20200421, end: 20200421
  4. EYLEA [Suspect]
     Active Substance: AFLIBERCEPT
     Dosage: LEFT EYE (OS), SOLUTION FOR INJECTION 40 MG/ML
     Route: 031
     Dates: start: 20200520, end: 20200520
  5. EYLEA [Suspect]
     Active Substance: AFLIBERCEPT
     Dosage: LEFT EYE (OS), SOLUTION FOR INJECTION 40 MG/ML
     Route: 031
     Dates: start: 20200617, end: 20200617
  6. EYLEA [Suspect]
     Active Substance: AFLIBERCEPT
     Dosage: LEFT EYE (OS), SOLUTION FOR INJECTION 40 MG/ML
     Route: 031
     Dates: start: 20200716, end: 20200716
  7. EYLEA [Suspect]
     Active Substance: AFLIBERCEPT
     Dosage: LEFT EYE (OS), SOLUTION FOR INJECTION 40 MG/ML
     Route: 031
     Dates: start: 20200813, end: 20200813
  8. EYLEA [Suspect]
     Active Substance: AFLIBERCEPT
     Dosage: LEFT EYE (OS), SOLUTION FOR INJECTION 40 MG/ML
     Route: 031
     Dates: start: 20200911, end: 20200911
  9. EYLEA [Suspect]
     Active Substance: AFLIBERCEPT
     Dosage: LEFT EYE (OS), SOLUTION FOR INJECTION 40 MG/ML
     Route: 031
     Dates: start: 20201009, end: 20201009
  10. EYLEA [Suspect]
     Active Substance: AFLIBERCEPT
     Dosage: LEFT EYE (OS), SOLUTION FOR INJECTION 40 MG/ML
     Route: 031
     Dates: start: 20201120, end: 20201120
  11. EYLEA [Suspect]
     Active Substance: AFLIBERCEPT
     Dosage: LEFT EYE (OS), SOLUTION FOR INJECTION 40 MG/ML
     Route: 031
     Dates: start: 20210330, end: 20210330
  12. EYLEA [Suspect]
     Active Substance: AFLIBERCEPT
     Dosage: LEFT EYE (OS), SOLUTION FOR INJECTION 40 MG/ML
     Route: 031
     Dates: start: 20210622, end: 20210622
  13. EYLEA [Suspect]
     Active Substance: AFLIBERCEPT
     Dosage: LEFT EYE (OS), SOLUTION FOR INJECTION 40 MG/ML
     Route: 031
     Dates: start: 20210831, end: 20210831
  14. EYLEA [Suspect]
     Active Substance: AFLIBERCEPT
     Dosage: LEFT EYE (OS), SOLUTION FOR INJECTION 40 MG/ML
     Route: 031
     Dates: start: 20211123, end: 20211123
  15. EYLEA [Suspect]
     Active Substance: AFLIBERCEPT
     Dosage: LEFT EYE (OS), SOLUTION FOR INJECTION 40 MG/ML
     Route: 031
     Dates: start: 20220215, end: 20220215
  16. EYLEA [Suspect]
     Active Substance: AFLIBERCEPT
     Dosage: LEFT EYE (OS), SOLUTION FOR INJECTION 40 MG/ML
     Route: 031
     Dates: start: 20220510, end: 20220510
  17. EYLEA [Suspect]
     Active Substance: AFLIBERCEPT
     Dosage: UNK, SOLUTION FOR INJECTION 40 MG/ML
     Route: 031
     Dates: start: 20221025, end: 20221025
  18. EYLEA [Suspect]
     Active Substance: AFLIBERCEPT
     Dosage: UNK, SOLUTION FOR INJECTION 40 MG/ML
     Route: 031
     Dates: start: 20230117, end: 20230117

REACTIONS (2)
  - Optic nerve compression [Not Recovered/Not Resolved]
  - Detachment of retinal pigment epithelium [Recovered/Resolved]

NARRATIVE: CASE EVENT DATE: 20220215
